FAERS Safety Report 20947528 (Version 1)
Quarter: 2022Q2

REPORT INFORMATION
  Report Type: Spontaneous
  Country: US (occurrence: US)
  Receive Date: 20220610
  Receipt Date: 20220610
  Transmission Date: 20220720
  Serious: No
  Sender: FDA-Public Use
  Company Number: US-RIGEL PHARMACEUTICALS, INC.-2022FOS000013

PATIENT
  Sex: Female
  Weight: 84.444 kg

DRUGS (3)
  1. TAVALISSE [Suspect]
     Active Substance: FOSTAMATINIB
     Indication: Immune thrombocytopenia
     Dosage: 150 MG, BID
     Route: 048
     Dates: start: 20210925
  2. TAVALISSE [Suspect]
     Active Substance: FOSTAMATINIB
     Indication: Neutropenia
  3. NPLATE [Concomitant]
     Active Substance: ROMIPLOSTIM
     Indication: Product used for unknown indication
     Dosage: UNK

REACTIONS (2)
  - Platelet count increased [Unknown]
  - Product dose omission issue [Unknown]
